FAERS Safety Report 5338445-8 (Version None)
Quarter: 2007Q2

REPORT INFORMATION
  Report Type: 
  Country: None (occurrence: None)
  Receive Date: 20070530
  Receipt Date: 20070521
  Transmission Date: 20071010
  Serious: Yes (Hospitalization)
  Sender: FDA-Public Use
  Company Number: JP-ELI_LILLY_AND_COMPANY-JP200704002829

PATIENT
  Age: 49 Year
  Sex: Male
  Weight: 49.5 kg

DRUGS (5)
  1. LOXOPROFEN SODIUM [Concomitant]
     Indication: PAIN
     Dosage: 3 D/F, DAILY (1/D)
     Route: 048
     Dates: start: 20060919
  2. LASIX [Concomitant]
     Indication: PLEURAL EFFUSION
     Dosage: 10 MG, DAILY (1/D)
     Route: 048
     Dates: start: 20060919
  3. ALDACTONE [Concomitant]
     Indication: PLEURAL EFFUSION
     Dosage: 25 MG, DAILY (1/D)
     Route: 048
     Dates: start: 20060919
  4. OXYCONTIN [Concomitant]
     Indication: PAIN
     Dosage: 40 MG, DAILY (1/D)
     Route: 048
     Dates: start: 20060926
  5. GEMZAR [Suspect]
     Indication: PANCREATIC CARCINOMA
     Dosage: 1400 MG, OTHER
     Route: 042
     Dates: start: 20060919, end: 20070101

REACTIONS (4)
  - CONSTIPATION [None]
  - INSOMNIA [None]
  - OESOPHAGITIS [None]
  - PNEUMONIA [None]
